FAERS Safety Report 10208742 (Version 1)
Quarter: 2014Q2

REPORT INFORMATION
  Report Type: Spontaneous
  Country: BR (occurrence: BR)
  Receive Date: 20140530
  Receipt Date: 20140530
  Transmission Date: 20141212
  Serious: Yes (Other)
  Sender: FDA-Public Use
  Company Number: BR-ELI_LILLY_AND_COMPANY-BR201405006433

PATIENT
  Sex: Male
  Weight: 84 kg

DRUGS (9)
  1. HUMALOG MIX 50 [Suspect]
     Indication: TYPE 1 DIABETES MELLITUS
     Dosage: 30 IU, EACH MORNING
     Route: 058
     Dates: start: 2010
  2. HUMALOG MIX 50 [Suspect]
     Dosage: 20 IU, EACH EVENING
     Route: 058
     Dates: start: 2010
  3. NIMESULIDA [Suspect]
     Indication: SKIN ULCER
     Dosage: 100 MG, UNKNOWN
     Route: 065
  4. GLIFAGE [Concomitant]
     Indication: DIABETES MELLITUS
     Dosage: 500 MG, BID
     Route: 065
  5. CARVEDILOL [Concomitant]
     Dosage: 12.5 MG, EACH MORNING
     Route: 065
  6. VASOPRIL                           /00915302/ [Concomitant]
     Indication: PRODUCT USED FOR UNKNOWN INDICATION
     Dosage: 0.5 DF, EACH MORNING
     Route: 065
  7. LASIX                              /00032601/ [Concomitant]
     Dosage: 40 MG, EACH MORNING
     Route: 065
  8. ALDACTONE                          /00006201/ [Concomitant]
     Dosage: 1 DF, QD
     Route: 065
  9. DIGOXINA [Concomitant]
     Dosage: 25 MG, EACH MORNING
     Route: 065

REACTIONS (25)
  - Cardiac valve disease [Not Recovered/Not Resolved]
  - Cardiomyopathy [Not Recovered/Not Resolved]
  - Skin ulcer [Not Recovered/Not Resolved]
  - Blood glucose increased [Not Recovered/Not Resolved]
  - Malaise [Not Recovered/Not Resolved]
  - Vertigo [Not Recovered/Not Resolved]
  - Hyperhidrosis [Not Recovered/Not Resolved]
  - Gait disturbance [Not Recovered/Not Resolved]
  - Wound complication [Not Recovered/Not Resolved]
  - Abdominal pain upper [Not Recovered/Not Resolved]
  - Diarrhoea [Not Recovered/Not Resolved]
  - Skin discolouration [Not Recovered/Not Resolved]
  - Visual acuity reduced [Not Recovered/Not Resolved]
  - Feeling abnormal [Not Recovered/Not Resolved]
  - Nervousness [Not Recovered/Not Resolved]
  - Nausea [Not Recovered/Not Resolved]
  - Dyspnoea [Not Recovered/Not Resolved]
  - Feeling cold [Not Recovered/Not Resolved]
  - Peripheral swelling [Not Recovered/Not Resolved]
  - Inappropriate schedule of drug administration [Not Recovered/Not Resolved]
  - Treatment noncompliance [None]
  - Blood pressure increased [None]
  - Inflammation of wound [None]
  - Malaise [None]
  - Inadequate diet [None]
